FAERS Safety Report 18164751 (Version 1)
Quarter: 2020Q3

REPORT INFORMATION
  Report Type: Spontaneous
  Country: US (occurrence: US)
  Receive Date: 20200818
  Receipt Date: 20200818
  Transmission Date: 20201103
  Serious: Yes (Other)
  Sender: FDA-Public Use
  Company Number: US-ASTRAZENECA-2020SF03189

PATIENT
  Age: 778 Month
  Sex: Female
  Weight: 95.7 kg

DRUGS (4)
  1. SYMBICORT [Suspect]
     Active Substance: BUDESONIDE\FORMOTEROL FUMARATE DIHYDRATE
     Indication: ASTHMA
     Dosage: 160/4.5 MCG, TWO PUFFS TWO TIMES A DAY
     Route: 048
     Dates: start: 2014, end: 2019
  2. MULTAQ [Concomitant]
     Active Substance: DRONEDARONE
     Dates: start: 2019
  3. SYNTHROID [Concomitant]
     Active Substance: LEVOTHYROXINE SODIUM
     Dosage: STARTED 40 YEARS AGO
  4. SYMBICORT [Suspect]
     Active Substance: BUDESONIDE\FORMOTEROL FUMARATE DIHYDRATE
     Indication: DYSPNOEA
     Dosage: 160/4.5 MCG, TWO PUFFS TWO TIMES A DAY
     Route: 048
     Dates: start: 2014, end: 2019

REACTIONS (4)
  - Asthma [Unknown]
  - Mitral valve incompetence [Unknown]
  - Cardiac disorder [Not Recovered/Not Resolved]
  - Tachycardia [Unknown]

NARRATIVE: CASE EVENT DATE: 201908
